FAERS Safety Report 5517609-4 (Version None)
Quarter: 2007Q4

REPORT INFORMATION
  Report Type: 
  Country: None (occurrence: None)
  Receive Date: 20071114
  Receipt Date: 20071105
  Transmission Date: 20080405
  Serious: Yes (Hospitalization)
  Sender: FDA-Public Use
  Company Number: FR-ABBOTT-07P-056-0423494-00

PATIENT
  Sex: Male

DRUGS (6)
  1. MICROPAKINE GRANULE [Suspect]
     Indication: DRUG USE FOR UNKNOWN INDICATION
     Route: 048
     Dates: end: 20070809
  2. MICROPAKINE GRANULE [Suspect]
     Route: 048
     Dates: start: 20070810, end: 20070825
  3. MICROPAKINE GRANULE [Suspect]
     Route: 048
     Dates: start: 20070826
  4. MICROPAKINE GRANULE [Suspect]
     Route: 048
  5. CLOBAZAM [Concomitant]
     Indication: DRUG USE FOR UNKNOWN INDICATION
     Route: 048
     Dates: start: 20060601
  6. STIRIPENTOL [Concomitant]
     Indication: DRUG USE FOR UNKNOWN INDICATION
     Route: 048
     Dates: start: 20061201

REACTIONS (13)
  - ANOREXIA [None]
  - ASPARTATE AMINOTRANSFERASE INCREASED [None]
  - ATAXIA [None]
  - DEHYDRATION [None]
  - DYSSTASIA [None]
  - GENERAL PHYSICAL HEALTH DETERIORATION [None]
  - HYPOTHERMIA [None]
  - HYPOTONIA [None]
  - MALNUTRITION [None]
  - SOMNOLENCE [None]
  - THROMBOCYTOPENIA [None]
  - TOXIC ENCEPHALOPATHY [None]
  - WEIGHT DECREASED [None]
